FAERS Safety Report 8220878-3 (Version None)
Quarter: 2012Q1

REPORT INFORMATION
  Report Type: 
  Country: None (occurrence: None)
  Receive Date: 20120313
  Receipt Date: 20120302
  Transmission Date: 20120608
  Serious: Yes (Hospitalization, Disabling, Other)
  Sender: FDA-Public Use
  Company Number: 2009SP023403

PATIENT
  Age: 44 Year
  Sex: Female
  Weight: 101.6057 kg

DRUGS (1)
  1. NUVARING [Suspect]
     Indication: CONTRACEPTION
     Dates: start: 20040601, end: 20061001

REACTIONS (29)
  - AORTIC ANEURYSM [None]
  - DYSPNOEA [None]
  - ELECTROCARDIOGRAM T WAVE ABNORMAL [None]
  - WHITE BLOOD CELL COUNT INCREASED [None]
  - OPHTHALMOPLEGIA [None]
  - HEART RATE INCREASED [None]
  - INFUSION SITE EXTRAVASATION [None]
  - PELVIC MASS [None]
  - DRUG DOSE OMISSION [None]
  - VOCAL CORD PARALYSIS [None]
  - DEPRESSION [None]
  - ALCOHOL USE [None]
  - OBESITY [None]
  - MYASTHENIA GRAVIS [None]
  - COUGH [None]
  - GASTROINTESTINAL CARCINOMA [None]
  - HYPOXIC-ISCHAEMIC ENCEPHALOPATHY [None]
  - AORTIC DISSECTION [None]
  - FIBRIN D DIMER INCREASED [None]
  - DYSPHAGIA [None]
  - SHOULDER OPERATION [None]
  - BLOOD GLUCOSE INCREASED [None]
  - PSEUDOBULBAR PALSY [None]
  - HYPERTENSION [None]
  - BLOOD URINE PRESENT [None]
  - VISUAL IMPAIRMENT [None]
  - CYST [None]
  - PULMONARY EMBOLISM [None]
  - DEEP VEIN THROMBOSIS [None]
